FAERS Safety Report 7288493-6 (Version None)
Quarter: 2011Q1

REPORT INFORMATION
  Report Type: 
  Country: None (occurrence: None)
  Receive Date: 20110211
  Receipt Date: 20110206
  Transmission Date: 20110831
  Serious: Yes (Death)
  Sender: FDA-Public Use
  Company Number: D0069823A

PATIENT
  Sex: Male

DRUGS (2)
  1. ARIXTRA [Suspect]
     Dosage: 2.5MG PER DAY
     Route: 058
  2. FRAXIPARIN [Concomitant]
     Route: 058

REACTIONS (2)
  - THROMBOSIS [None]
  - PULMONARY EMBOLISM [None]
